FAERS Safety Report 19002571 (Version 2)
Quarter: 2021Q1

REPORT INFORMATION
  Report Type: Spontaneous
  Country: US (occurrence: US)
  Receive Date: 20210312
  Receipt Date: 20210312
  Transmission Date: 20210420
  Serious: No
  Sender: FDA-Public Use
  Company Number: US-ALLERGAN-2029229US

PATIENT
  Age: 66 Year
  Sex: Female

DRUGS (4)
  1. ESTRACE [Suspect]
     Active Substance: ESTRADIOL
     Indication: VAGINAL DISCHARGE
  2. ESTRACE [Suspect]
     Active Substance: ESTRADIOL
     Indication: VULVOVAGINAL DRYNESS
     Dosage: 1 APPLICATOR FULL VAGINALLY ONCE A DAY FOR 14 DAYS THEN 2?3 TIMES A WEEK
     Route: 067
  3. ESTRACE [Suspect]
     Active Substance: ESTRADIOL
     Indication: VULVOVAGINAL DRYNESS
     Dosage: 1 APPLICATOR FULL VAGINALLY ONCE A DAY FOR
     Dates: start: 202007
  4. ESTRACE [Suspect]
     Active Substance: ESTRADIOL
     Indication: VAGINAL DISCHARGE

REACTIONS (2)
  - Nipple pain [Recovered/Resolved]
  - Muscle spasms [Recovered/Resolved]

NARRATIVE: CASE EVENT DATE: 20200806
